FAERS Safety Report 8594564 (Version 3)
Quarter: 2013Q3

REPORT INFORMATION
  Report Type: Spontaneous
  Country: US (occurrence: US)
  Receive Date: 20120604
  Receipt Date: 20130913
  Transmission Date: 20140515
  Serious: Yes (Other)
  Sender: FDA-Public Use
  Company Number: US-GLAXOSMITHKLINE-A0941903A

PATIENT
  Age: 47 Year
  Sex: Male

DRUGS (2)
  1. AVANDIA [Suspect]
     Indication: DIABETES MELLITUS
     Route: 048
     Dates: start: 20010604, end: 20061101
  2. AVANDAMET [Suspect]
     Indication: DIABETES MELLITUS
     Route: 048
     Dates: start: 20051014, end: 20080106

REACTIONS (4)
  - Myocardial infarction [Not Recovered/Not Resolved]
  - Ejection fraction decreased [Unknown]
  - Cardiomyopathy [Unknown]
  - Cardiac failure congestive [Unknown]
